FAERS Safety Report 8842196 (Version 1)
Quarter: 2012Q4

REPORT INFORMATION
  Report Type: Spontaneous
  Country: US (occurrence: None)
  Receive Date: 20121015
  Receipt Date: 20121015
  Transmission Date: 20130627
  Serious: No
  Sender: FDA-Public Use
  Company Number: None

PATIENT
  Age: 64 Year
  Sex: Male
  Weight: 83.5 kg

DRUGS (1)
  1. WARFARIN [Suspect]
     Indication: CEREBROVASCULAR ACCIDENT PROPHYLAXIS
     Route: 048
     Dates: start: 19941219, end: 20121009

REACTIONS (9)
  - International normalised ratio increased [None]
  - Haemoglobin decreased [None]
  - Haematocrit decreased [None]
  - Melaena [None]
  - Angina pectoris [None]
  - Duodenitis [None]
  - Duodenal ulcer [None]
  - Helicobacter test positive [None]
  - Gastric haemorrhage [None]
